FAERS Safety Report 7650320-2 (Version None)
Quarter: 2011Q3

REPORT INFORMATION
  Report Type: 
  Country: None (occurrence: None)
  Receive Date: 20110802
  Receipt Date: 20110727
  Transmission Date: 20111222
  Serious: Yes (Other)
  Sender: FDA-Public Use
  Company Number: US-AMGEN-USASP2011038535

PATIENT
  Sex: Male

DRUGS (2)
  1. NPLATE [Suspect]
     Indication: THROMBOCYTOPENIA
     Dates: start: 20100121, end: 20100504
  2. NPLATE [Suspect]
     Indication: IDIOPATHIC THROMBOCYTOPENIC PURPURA

REACTIONS (1)
  - REFRACTORY ANAEMIA [None]
